FAERS Safety Report 5083431-9 (Version None)
Quarter: 2006Q3

REPORT INFORMATION
  Report Type: 
  Country: None (occurrence: None)
  Receive Date: 20060818
  Receipt Date: 20060808
  Transmission Date: 20061208
  Serious: Yes (Other)
  Sender: FDA-Public Use
  Company Number: PHEH2006US10149

PATIENT
  Age: 55 Year
  Sex: Female

DRUGS (6)
  1. ZOMETA [Suspect]
     Indication: METASTASES TO BONE
     Dosage: 4 MG, QMO
     Dates: start: 20031002, end: 20060608
  2. VINORELBINE [Concomitant]
     Dosage: 25 MG/M^2, DAY 1, 8, 9, 21
  3. HERCEPTIN [Concomitant]
     Dosage: 6 MG/KG, QW3
     Route: 042
  4. COUMADIN [Concomitant]
  5. EFFEXOR [Concomitant]
  6. ATIVAN [Concomitant]

REACTIONS (5)
  - BONE DISORDER [None]
  - JAW OPERATION [None]
  - OSTEOMYELITIS ACUTE [None]
  - OSTEONECROSIS [None]
  - OSTEOSCLEROSIS [None]
